FAERS Safety Report 10051407 (Version 1)
Quarter: 2014Q2

REPORT INFORMATION
  Report Type: Spontaneous
  Country: US (occurrence: US)
  Receive Date: 20140401
  Receipt Date: 20140401
  Transmission Date: 20141212
  Serious: No
  Sender: FDA-Public Use
  Company Number: US-PFIZER INC-2014090739

PATIENT
  Age: 67 Year
  Sex: Female

DRUGS (10)
  1. EFFEXOR XR [Suspect]
     Dosage: 150 MG, TWICE A DAY (2 TABLETS IN THE MORNING)
  2. DIAZEPAM [Concomitant]
     Dosage: 10 MG, (TAKE 1 TABLET 2-3 TIMES PER DAY)
     Route: 048
     Dates: start: 20110103
  3. GABAPENTIN [Concomitant]
     Dosage: 300 MG, (TAKE 2 CAPSULES BEDTIME)
     Route: 048
     Dates: start: 20131115
  4. IBUPROFEN [Concomitant]
     Indication: PAIN
     Dosage: 800 MG, TAKE 1 TABLET 3 TIMES DAILY PRN (TAKE WITH FOOD)
     Route: 048
     Dates: start: 20110920
  5. SIMVASTATIN [Concomitant]
     Dosage: 40 MG, 1 TABLET DAILY AT BED TIME
     Route: 048
     Dates: start: 20130110
  6. VENTOLIN HFA [Concomitant]
     Dosage: 108 (90 BASE) MCG/ ACT INHALATION AEROSOL SOLUTION, 2 PUFFS EVERY 4 HOURS PRN
     Route: 055
     Dates: start: 20121209
  7. VITAMIN C [Concomitant]
     Dosage: 1000 MG, UNK
     Route: 048
     Dates: start: 20111101
  8. VITAMIN D [Concomitant]
     Dosage: 2000 IU, UNK
     Route: 048
     Dates: start: 20111101
  9. PROCHLORPERAZINE MALEATE [Concomitant]
     Indication: NAUSEA
     Dosage: 10 MG, TAKE 1 TABLET EVERY 6 HOURS AS NEEDED
     Route: 048
     Dates: start: 20131207
  10. HYDROCODONE W/ACETAMINOPHEN [Concomitant]
     Indication: PAIN
     Dosage: 10/325 MG, ONCE EVERY 6 HOURS AS NEEDED
     Route: 048
     Dates: start: 20140311

REACTIONS (2)
  - Pain [Unknown]
  - Nausea [Unknown]
